FAERS Safety Report 8568991-5 (Version None)
Quarter: 2012Q3

REPORT INFORMATION
  Report Type: 
  Country: None (occurrence: None)
  Receive Date: 20120803
  Receipt Date: 20120413
  Transmission Date: 20120928
  Serious: No
  Sender: FDA-Public Use
  Company Number: US-ABBOTT-12P-163-0924884-00

PATIENT
  Sex: Female
  Weight: 54.48 kg

DRUGS (1)
  1. NIASPAN [Suspect]
     Indication: LOW DENSITY LIPOPROTEIN INCREASED

REACTIONS (4)
  - GAIT DISTURBANCE [None]
  - DRY MOUTH [None]
  - PAIN IN EXTREMITY [None]
  - MUSCULAR WEAKNESS [None]
